FAERS Safety Report 24749480 (Version 1)
Quarter: 2024Q4

REPORT INFORMATION
  Report Type: Spontaneous
  Country: US (occurrence: US)
  Receive Date: 20241218
  Receipt Date: 20241218
  Transmission Date: 20250115
  Serious: No
  Sender: ELI LILLY AND COMPANY
  Company Number: US-ELI_LILLY_AND_COMPANY-US202412010472

PATIENT
  Age: 62 Year

DRUGS (1)
  1. ZEPBOUND [Suspect]
     Active Substance: TIRZEPATIDE
     Indication: Weight control
     Dosage: 2.5 MG, UNKNOWN
     Route: 058
     Dates: start: 20241212

REACTIONS (9)
  - Flushing [Unknown]
  - Arthralgia [Unknown]
  - Anxiety [Unknown]
  - Breast pain [Unknown]
  - Nervousness [Unknown]
  - Back pain [Unknown]
  - Axillary pain [Unknown]
  - Neck pain [Unknown]
  - Tenderness [Not Recovered/Not Resolved]

NARRATIVE: CASE EVENT DATE: 20241213
